FAERS Safety Report 9247540 (Version 1)
Quarter: 2013Q2

REPORT INFORMATION
  Report Type: Report from Study
  Country: AR (occurrence: AR)
  Receive Date: 20130423
  Receipt Date: 20130423
  Transmission Date: 20140414
  Serious: Yes (Other)
  Sender: FDA-Public Use
  Company Number: PHHY2013AR039254

PATIENT
  Age: 70 Year
  Sex: Female

DRUGS (2)
  1. EXFORGE [Suspect]
     Indication: HYPERTENSION
     Dosage: 1 DF(160/5MG), DAILY
     Route: 048
     Dates: start: 201208
  2. EXFORGE [Suspect]
     Dosage: 0.5 DF (160/5MG), DAILY
     Dates: start: 20130406, end: 20130410

REACTIONS (5)
  - Feeling abnormal [Unknown]
  - Agitation [Unknown]
  - Arrhythmia [Recovering/Resolving]
  - Dyspnoea [Unknown]
  - Wrong technique in drug usage process [Unknown]
